FAERS Safety Report 11555491 (Version 1)
Quarter: 2015Q3

REPORT INFORMATION
  Report Type: Spontaneous
  Country: US (occurrence: US)
  Receive Date: 20150925
  Receipt Date: 20150925
  Transmission Date: 20151125
  Serious: Yes (Other)
  Sender: FDA-Public Use
  Company Number: US-BAUSCH-BL-2015-020166

PATIENT
  Age: 66 Year
  Sex: Male

DRUGS (4)
  1. PROVENGE [Suspect]
     Active Substance: SIPULEUCEL-T
     Indication: PROSTATE CANCER
     Dosage: 250 ML SINGLE
     Route: 042
     Dates: start: 20150724, end: 20150724
  2. COUMADIN [Concomitant]
     Active Substance: WARFARIN SODIUM
     Indication: POSTOPERATIVE CARE
  3. PROVENGE [Suspect]
     Active Substance: SIPULEUCEL-T
     Dosage: 250 ML SINGLE
     Route: 042
     Dates: start: 20150807, end: 20150807
  4. COUMADIN [Concomitant]
     Active Substance: WARFARIN SODIUM

REACTIONS (2)
  - International normalised ratio increased [Unknown]
  - Fracture [Unknown]

NARRATIVE: CASE EVENT DATE: 20150817
